FAERS Safety Report 18564439 (Version 2)
Quarter: 2020Q4

REPORT INFORMATION
  Report Type: Spontaneous
  Country: CZ (occurrence: CZ)
  Receive Date: 20201201
  Receipt Date: 20201207
  Transmission Date: 20210114
  Serious: Yes (Other)
  Sender: FDA-Public Use
  Company Number: NVSC2020CZ316137

PATIENT
  Age: 68 Year
  Sex: Male

DRUGS (8)
  1. DOCETAXEL. [Suspect]
     Active Substance: DOCETAXEL
     Indication: PROSTATE CANCER METASTATIC
  2. DOCETAXEL. [Suspect]
     Active Substance: DOCETAXEL
     Indication: HORMONE-REFRACTORY PROSTATE CANCER
  3. DENOSUMAB [Concomitant]
     Active Substance: DENOSUMAB
     Indication: PRODUCT USED FOR UNKNOWN INDICATION
     Dosage: UNK
     Route: 058
  4. CABAZITAXEL [Suspect]
     Active Substance: CABAZITAXEL
     Indication: PROSTATE CANCER METASTATIC
     Dosage: 25 MG/M2, ONCE PER 21 DAYS
     Route: 042
  5. PREDNISONE. [Concomitant]
     Active Substance: PREDNISONE
     Indication: PROSTATE CANCER METASTATIC
     Dosage: 10 MG DAILY
     Route: 048
     Dates: start: 201809
  6. DOCETAXEL. [Suspect]
     Active Substance: DOCETAXEL
     Indication: DISEASE PROGRESSION
     Dosage: 75 MG/M2 (TOTAL 7 CYCLES)
     Route: 042
     Dates: start: 201902
  7. CABAZITAXEL [Suspect]
     Active Substance: CABAZITAXEL
     Indication: HORMONE-REFRACTORY PROSTATE CANCER
  8. DOCETAXEL. [Suspect]
     Active Substance: DOCETAXEL
     Indication: PROSTATE CANCER METASTATIC
     Dosage: 2.7143 MG/M2 DAILY; 57 MG/M2 I.V. EVERY 21 DAYS, 7 CYCLES TOTAL
     Route: 042
     Dates: start: 201902, end: 2019

REACTIONS (9)
  - Thrombocytopenia [Unknown]
  - Nausea [Unknown]
  - Haematotoxicity [Unknown]
  - Anaemia [Unknown]
  - Toxicity to various agents [Unknown]
  - Diarrhoea [Unknown]
  - Erythema [Unknown]
  - Neutropenia [Unknown]
  - Hepatic enzyme increased [Unknown]

NARRATIVE: CASE EVENT DATE: 2019
